FAERS Safety Report 12309437 (Version 5)
Quarter: 2017Q1

REPORT INFORMATION
  Report Type: Spontaneous
  Country: US (occurrence: US)
  Receive Date: 20160427
  Receipt Date: 20170104
  Transmission Date: 20170428
  Serious: No
  Sender: FDA-Public Use
  Company Number: US-PFIZER INC-2015062531

PATIENT
  Age: 78 Year
  Sex: Female

DRUGS (19)
  1. LYRICA [Suspect]
     Active Substance: PREGABALIN
     Indication: FIBROMYALGIA
     Dosage: 25 MG, 2X/DAY
     Route: 048
  2. LYRICA [Suspect]
     Active Substance: PREGABALIN
     Dosage: 1 CAPSULE AM (75 MG) AND 2 CAPSULES PM (150 MG)
     Route: 048
     Dates: start: 20160804
  3. OMEPRAZOLE. [Concomitant]
     Active Substance: OMEPRAZOLE
     Dosage: 40 MG, 1X/DAY
     Route: 048
  4. DILAUDID [Concomitant]
     Active Substance: HYDROMORPHONE HYDROCHLORIDE
     Indication: PAIN
     Dosage: 2 MG, AS NEEDED (1-2 TABS/EVERY 4 HOURS)
     Route: 048
  5. NORVASC [Concomitant]
     Active Substance: AMLODIPINE BESYLATE
     Dosage: 2.5 MG, 1X/DAY
     Route: 048
  6. TOFRANIL [Concomitant]
     Active Substance: IMIPRAMINE HYDROCHLORIDE
     Dosage: 25 MG, 1X/DAY QHS
     Route: 048
  7. PHENERGAN [Concomitant]
     Active Substance: PROMETHAZINE HYDROCHLORIDE
     Dosage: 12.5 MG, 4X/DAY
     Route: 048
  8. VITAMIN B12 [Concomitant]
     Active Substance: CYANOCOBALAMIN
     Dosage: UNK, 1X/DAY
     Route: 048
  9. RESTASIS [Concomitant]
     Active Substance: CYCLOSPORINE
     Dosage: 0.05 %, 2X/DAY (EVERY 12 HOURS)
     Route: 047
  10. ATARAX [Concomitant]
     Active Substance: HYDROXYZINE HYDROCHLORIDE
     Dosage: 50 MG, UNK
     Route: 048
  11. LEVOCETIRIZINE [Concomitant]
     Active Substance: LEVOCETIRIZINE
     Indication: HYPERSENSITIVITY
     Dosage: 5 MG, DAILY (EVERY EVENING)
     Route: 048
  12. BENTYL [Concomitant]
     Active Substance: DICYCLOMINE HYDROCHLORIDE
     Indication: ABDOMINAL PAIN
     Dosage: 20 MG, 4X/DAY AS NEEDED
     Route: 048
  13. DICLOFENAC SODIUM. [Concomitant]
     Active Substance: DICLOFENAC SODIUM
     Dosage: UNK
  14. TOFRANIL [Concomitant]
     Active Substance: IMIPRAMINE HYDROCHLORIDE
     Dosage: 10 MG, DAILY (1-2)/ AT BEDTIME
     Route: 048
  15. ECOTRIN [Concomitant]
     Active Substance: ASPIRIN
     Dosage: 325 MG, 2X/DAY (WITH MEALS)
     Route: 048
  16. ULTRAM [Concomitant]
     Active Substance: TRAMADOL HYDROCHLORIDE
     Indication: PAIN
     Dosage: 50 MG, EVERY 6 HOURS AS NEEDED
     Route: 048
  17. CELEBREX [Concomitant]
     Active Substance: CELECOXIB
     Dosage: 100 MG, 2X/DAY
     Route: 048
  18. LYRICA [Suspect]
     Active Substance: PREGABALIN
     Dosage: 150 MG, 1 IN AM AND 2 IN PM
     Route: 048
  19. VITAMIN D3 [Concomitant]
     Active Substance: CHOLECALCIFEROL
     Dosage: 2000 IU, 1X/DAY
     Route: 048

REACTIONS (2)
  - Neuropathy peripheral [Unknown]
  - Fatigue [Unknown]
